FAERS Safety Report 10461282 (Version 1)
Quarter: 2014Q3

REPORT INFORMATION
  Report Type: Spontaneous
  Country: US (occurrence: None)
  Receive Date: 20140917
  Receipt Date: 20140917
  Transmission Date: 20150326
  Serious: Yes (Other)
  Sender: FDA-Public Use
  Company Number: None

PATIENT
  Age: 61 Year
  Sex: Male
  Weight: 104.33 kg

DRUGS (8)
  1. POTASSIUM CIT [Concomitant]
     Dosage: 1080MG, 1 PILLS EACH MEAL, 3X A DAY, BY MOUTH
     Route: 048
     Dates: start: 20140729, end: 20140730
  2. PIOGLITAZONE [Concomitant]
     Active Substance: PIOGLITAZONE
  3. METFORMIN [Concomitant]
     Active Substance: METFORMIN HYDROCHLORIDE
  4. SIMVASTATIN. [Concomitant]
     Active Substance: SIMVASTATIN
  5. VITAMIN D3 [Concomitant]
     Active Substance: CHOLECALCIFEROL
  6. GLYBURIDE. [Concomitant]
     Active Substance: GLYBURIDE
  7. SLO-NIACIN [Concomitant]
     Active Substance: DIETARY SUPPLEMENT
  8. GLYBURIDE. [Suspect]
     Active Substance: GLYBURIDE
     Indication: TYPE 2 DIABETES MELLITUS
     Dosage: 5 MG, 2 TABS, 2 TIMES A DAY, BY MOUTH
     Route: 048
     Dates: start: 1995

REACTIONS (4)
  - Malaise [None]
  - Blood glucose decreased [None]
  - Prostatic pain [None]
  - Tremor [None]

NARRATIVE: CASE EVENT DATE: 20140730
